FAERS Safety Report 17653011 (Version 2)
Quarter: 2020Q2

REPORT INFORMATION
  Report Type: Report from Study
  Country: None (occurrence: JP)
  Receive Date: 20200409
  Receipt Date: 20200410
  Transmission Date: 20200713
  Serious: Yes (Other)
  Sender: FDA-Public Use
  Company Number: JP-ABBVIE-20K-087-3357161-00

PATIENT
  Age: 70 Year
  Sex: Female
  Weight: 54 kg

DRUGS (6)
  1. MINOMYCIN [Concomitant]
     Active Substance: MINOCYCLINE HYDROCHLORIDE
     Indication: IMPETIGO
     Route: 048
     Dates: start: 20160803
  2. MINOMYCIN [Concomitant]
     Active Substance: MINOCYCLINE HYDROCHLORIDE
     Route: 048
     Dates: start: 20160803
  3. IMBRUVICA [Suspect]
     Active Substance: IBRUTINIB
     Indication: CHRONIC LYMPHOCYTIC LEUKAEMIA REFRACTORY
     Route: 048
     Dates: start: 20160727
  4. BAKTAR [Concomitant]
     Active Substance: SULFAMETHOXAZOLE\TRIMETHOPRIM
     Indication: PROPHYLAXIS
     Route: 048
  5. AMOXICILLIN TRIHYDRATE [Concomitant]
     Active Substance: AMOXICILLIN
     Indication: IMPETIGO
     Route: 048
     Dates: start: 20160803
  6. ACUATIM [Concomitant]
     Active Substance: NADIFLOXACIN
     Indication: IMPETIGO
     Dosage: TWO OR THREE TIMES PER DAY
     Route: 061
     Dates: start: 20160920

REACTIONS (2)
  - Intracranial tumour haemorrhage [Recovered/Resolved]
  - Haemangioma [Recovered/Resolved]

NARRATIVE: CASE EVENT DATE: 2016
